FAERS Safety Report 8114114-6 (Version None)
Quarter: 2012Q1

REPORT INFORMATION
  Report Type: 
  Country: None (occurrence: None)
  Receive Date: 20120204
  Receipt Date: 20120125
  Transmission Date: 20120608
  Serious: Yes (Other)
  Sender: FDA-Public Use
  Company Number: US-ASTRAZENECA-2012SE05525

PATIENT
  Age: 53 Year
  Sex: Female

DRUGS (2)
  1. ZOLADEX [Suspect]
     Route: 058
  2. FASLODEX [Suspect]
     Route: 030

REACTIONS (1)
  - BREAST CANCER FEMALE [None]
